FAERS Safety Report 4528034-7 (Version None)
Quarter: 2004Q4

REPORT INFORMATION
  Report Type: 
  Country: None (occurrence: None)
  Receive Date: 20041123
  Receipt Date: 20040419
  Transmission Date: 20050328
  Serious: Yes (Disabling)
  Sender: FDA-Public Use
  Company Number: 2004026349

PATIENT
  Age: 69 Year
  Sex: Male

DRUGS (1)
  1. LIPITOR [Suspect]
     Indication: ILL-DEFINED DISORDER
     Dosage: 20 MG (BID)

REACTIONS (3)
  - LIVER FUNCTION TEST ABNORMAL [None]
  - MYALGIA [None]
  - WHEELCHAIR USER [None]
